FAERS Safety Report 15778235 (Version 5)
Quarter: 2019Q1

REPORT INFORMATION
  Report Type: Report from Study
  Country: US (occurrence: US)
  Receive Date: 20181231
  Receipt Date: 20190219
  Transmission Date: 20190417
  Serious: Yes (Hospitalization)
  Sender: FDA-Public Use
  Company Number: US-ACTELION-A-US2018-181620

PATIENT
  Age: 47 Year
  Sex: Female
  Weight: 93.42 kg

DRUGS (5)
  1. OPSUMIT [Suspect]
     Active Substance: MACITENTAN
     Indication: PULMONARY ARTERIAL HYPERTENSION
     Dosage: 10 MG, QD
     Route: 048
     Dates: start: 20181119
  2. VELETRI [Suspect]
     Active Substance: EPOPROSTENOL
     Indication: PULMONARY ARTERIAL HYPERTENSION
     Dosage: 10 NG/KG, PER MIN
     Route: 042
  3. VELETRI [Suspect]
     Active Substance: EPOPROSTENOL
     Dosage: 7 NG/KG, PER MIN
     Route: 042
  4. ADEMPAS [Suspect]
     Active Substance: RIOCIGUAT
     Indication: PRODUCT USED FOR UNKNOWN INDICATION
     Dosage: UNK
     Route: 065
  5. VELETRI [Suspect]
     Active Substance: EPOPROSTENOL
     Dosage: 11 NG/KG, PER MIN
     Route: 042

REACTIONS (27)
  - Constipation [Unknown]
  - Vomiting [Unknown]
  - Syncope [Unknown]
  - Decreased appetite [Unknown]
  - Dizziness [Unknown]
  - Asthenia [Unknown]
  - Condition aggravated [Unknown]
  - Dyspnoea [Unknown]
  - Diarrhoea [Unknown]
  - Flushing [Unknown]
  - Dyspnoea exertional [Unknown]
  - Tachycardia [Unknown]
  - Hospitalisation [Unknown]
  - Migraine [Unknown]
  - Nausea [Unknown]
  - Hypotension [Unknown]
  - Chest pain [Unknown]
  - Fall [Unknown]
  - Headache [Unknown]
  - Pain in jaw [Unknown]
  - Loss of consciousness [Unknown]
  - Head injury [Unknown]
  - Vision blurred [Unknown]
  - Blister [Recovered/Resolved]
  - Arthralgia [Unknown]
  - Catheter site inflammation [Recovering/Resolving]
  - Palpitations [Unknown]

NARRATIVE: CASE EVENT DATE: 20181209
